FAERS Safety Report 9155221 (Version 1)
Quarter: 2013Q1

REPORT INFORMATION
  Report Type: Report from Study
  Country: CA (occurrence: CA)
  Receive Date: 20130311
  Receipt Date: 20130311
  Transmission Date: 20140127
  Serious: Yes (Other)
  Sender: FDA-Public Use
  Company Number: CA-ROCHE-1199620

PATIENT
  Age: 72 Year
  Sex: 0

DRUGS (4)
  1. AVASTIN [Suspect]
     Indication: COLORECTAL CANCER
     Route: 065
     Dates: start: 201207, end: 201212
  2. FOLINIC ACID [Suspect]
     Indication: COLORECTAL CANCER
     Route: 065
     Dates: start: 201207, end: 201212
  3. FLUOROURACIL [Suspect]
     Indication: COLORECTAL CANCER
     Route: 065
     Dates: start: 201207, end: 201212
  4. IRINOTECAN [Suspect]
     Indication: COLORECTAL CANCER
     Route: 065
     Dates: start: 201207, end: 201212

REACTIONS (3)
  - Adverse reaction [Unknown]
  - Toxicity to various agents [Unknown]
  - Hypertension [Unknown]
